FAERS Safety Report 4802854-3 (Version None)
Quarter: 2005Q4

REPORT INFORMATION
  Report Type: 
  Country: None (occurrence: None)
  Receive Date: 20051013
  Receipt Date: 20051003
  Transmission Date: 20060501
  Serious: Yes (Life-Threatening, Hospitalization)
  Sender: FDA-Public Use
  Company Number: EM2005-0457

PATIENT
  Age: 55 Year
  Sex: Male
  Weight: 60 kg

DRUGS (34)
  1. MACROLIN; CHIRON CORPORATION (ALDESLEUKIN) INJECTION [Suspect]
     Indication: HIV INFECTION
     Dosage: SEE IMAGE
     Route: 058
     Dates: start: 20050329, end: 20050402
  2. MACROLIN; CHIRON CORPORATION (ALDESLEUKIN) INJECTION [Suspect]
     Indication: HIV INFECTION
     Dosage: SEE IMAGE
     Route: 058
     Dates: start: 20050502, end: 20050506
  3. MACROLIN; CHIRON CORPORATION (ALDESLEUKIN) INJECTION [Suspect]
     Indication: HIV INFECTION
     Dosage: SEE IMAGE
     Route: 058
     Dates: start: 20050613, end: 20050617
  4. MACROLIN; CHIRON CORPORATION (ALDESLEUKIN) INJECTION [Suspect]
     Indication: HIV INFECTION
     Dosage: SEE IMAGE
     Route: 058
     Dates: start: 20050726, end: 20050730
  5. MACROLIN; CHIRON CORPORATION (ALDESLEUKIN) INJECTION [Suspect]
  6. MACROLIN; CHIRON CORPORATION (ALDESLEUKIN) INJECTION [Suspect]
  7. NORVIR [Suspect]
     Indication: HIV INFECTION
     Dosage: 200 MG, QD
     Dates: start: 20010215
  8. ANFUVIRTIDE (ANFUVIRTIDE) [Suspect]
     Indication: HIV INFECTION
     Dosage: 180 MG, QD
     Dates: start: 20020220
  9. FOSAMPRENAVIR (FOSAMPRENAVIR) [Suspect]
     Indication: HIV INFECTION
     Dosage: 1400 MG, QD
     Dates: start: 20040917
  10. IMOVANE (ZOPICLONE) [Concomitant]
  11. PAROXETINE HYDROCHLORIDE [Concomitant]
  12. TELZIR [Concomitant]
  13. OMEPRAZOLE [Concomitant]
  14. ANSATIPIN (RIFABUTIN) [Concomitant]
  15. ZITHROMAX [Concomitant]
  16. ROVALCYTE [Concomitant]
  17. BACTRIM [Concomitant]
  18. SMECTA ^PFIZER^ (GLUCOSE MONOHYDRATE, SACCHARIN SODIUM, VANILLIN) [Concomitant]
  19. NEURONTIN [Concomitant]
  20. SPECIAFOLDINE (FOLIC ACID) [Concomitant]
  21. VOLUVEN [Concomitant]
  22. ROCEPHIN [Concomitant]
  23. OFLOCET (OFLOXACIN) [Concomitant]
  24. FLUDROCORTISONE ACETATE [Concomitant]
  25. PERFALGAN [Concomitant]
  26. ACETAMINOPHEN [Concomitant]
  27. TIORFAN (ACETORPHAN) [Concomitant]
  28. SANDOSTATINE (OCTREDOTIDE) [Concomitant]
  29. PRIMPERAN INJ [Concomitant]
  30. INIPOMP (PANTROPRAZOLE) [Concomitant]
  31. FUNGIZONE (AMPHOTERICIAN B) [Concomitant]
  32. ANCOTIL (FLUCYTOSINE) [Concomitant]
  33. SOMATOLINE (ESCIN, LEVOTHYROXINE) [Concomitant]
  34. SODIUM CHLORIDE 0.9% [Concomitant]

REACTIONS (31)
  - ACUTE RESPIRATORY FAILURE [None]
  - AORTIC VALVE DISEASE [None]
  - ASTHENIA [None]
  - BLOOD DISORDER [None]
  - BLOOD FIBRINOGEN DECREASED [None]
  - C-REACTIVE PROTEIN INCREASED [None]
  - CARDIOMEGALY [None]
  - CONFUSIONAL STATE [None]
  - COR PULMONALE ACUTE [None]
  - CSF TEST ABNORMAL [None]
  - DIARRHOEA [None]
  - DRUG INEFFECTIVE [None]
  - DYSPNOEA [None]
  - EXTENSOR PLANTAR RESPONSE [None]
  - HYPONATRAEMIA [None]
  - HYPOTENSION [None]
  - HYPOXIA [None]
  - INFLAMMATION [None]
  - INTERSTITIAL LUNG DISEASE [None]
  - MITRAL VALVE DISEASE [None]
  - NEUROLOGICAL SYMPTOM [None]
  - NUCHAL RIGIDITY [None]
  - PANCYTOPENIA [None]
  - PERICARDIAL EFFUSION [None]
  - PO2 DECREASED [None]
  - PO2 INCREASED [None]
  - PYREXIA [None]
  - RALES [None]
  - RESPIRATORY ALKALOSIS [None]
  - SOMNOLENCE [None]
  - STAPHYLOCOCCAL SEPSIS [None]
